FAERS Safety Report 20567176 (Version 9)
Quarter: 2024Q3

REPORT INFORMATION
  Report Type: Report from Study
  Country: DE (occurrence: DE)
  Receive Date: 20220308
  Receipt Date: 20240815
  Transmission Date: 20241017
  Serious: No
  Sender: ROCHE
  Company Number: DE-ROCHE-2867578

PATIENT
  Age: 31 Year
  Sex: Female

DRUGS (11)
  1. OCREVUS [Suspect]
     Active Substance: OCRELIZUMAB
     Indication: Relapsing-remitting multiple sclerosis
     Dosage: SUBSEQUENT DOSE OF OCRELIZUMAB: 02/DEC/2021, 29/MAR/2023
     Route: 042
     Dates: start: 20180123
  2. COMIRNATY (TOZINAMERAN) [Suspect]
     Active Substance: TOZINAMERAN
     Indication: COVID-19 prophylaxis
     Dosage: FIRST VACCINATION DOSE
     Route: 065
     Dates: start: 20210520
  3. COMIRNATY (TOZINAMERAN) [Suspect]
     Active Substance: TOZINAMERAN
     Dosage: SECOND VACCINATION DOSE
     Route: 065
     Dates: start: 20210708
  4. ESOMEPRAZOLE [Concomitant]
     Active Substance: ESOMEPRAZOLE
  5. PANTOPRAZOLE [Concomitant]
     Active Substance: PANTOPRAZOLE
  6. MIRABEGRON [Concomitant]
     Active Substance: MIRABEGRON
  7. PREGABALIN [Concomitant]
     Active Substance: PREGABALIN
  8. GABAPENTIN [Concomitant]
     Active Substance: GABAPENTIN
  9. LOPERAMIDE [Concomitant]
     Active Substance: LOPERAMIDE
  10. DOXEPIN [Concomitant]
     Active Substance: DOXEPIN
  11. LEVOTHYROXINE [Concomitant]
     Active Substance: LEVOTHYROXINE\LEVOTHYROXINE SODIUM

REACTIONS (12)
  - Pain in extremity [Not Recovered/Not Resolved]
  - Full blood count abnormal [Recovered/Resolved]
  - Radius fracture [Recovered/Resolved]
  - Fatigue [Recovered/Resolved]
  - COVID-19 [Recovered/Resolved]
  - Osteoporosis [Not Recovered/Not Resolved]
  - Gait disturbance [Not Recovered/Not Resolved]
  - B-lymphocyte count decreased [Recovered/Resolved]
  - Nasopharyngitis [Recovered/Resolved]
  - Immunoglobulins decreased [Not Recovered/Not Resolved]
  - Cystitis noninfective [Recovered/Resolved]
  - Vein disorder [Unknown]

NARRATIVE: CASE EVENT DATE: 20210520
